FAERS Safety Report 16180746 (Version 1)
Quarter: 2019Q2

REPORT INFORMATION
  Report Type: Spontaneous
  Country: US (occurrence: US)
  Receive Date: 20190410
  Receipt Date: 20190410
  Transmission Date: 20190711
  Serious: No
  Sender: FDA-Public Use
  Company Number: US-TEVA-2019-US-1034527

PATIENT
  Sex: Female

DRUGS (1)
  1. CLONAZEPAM TABLET [Suspect]
     Active Substance: CLONAZEPAM
     Indication: SOMNAMBULISM
     Route: 065
     Dates: start: 1989

REACTIONS (5)
  - Headache [Unknown]
  - Product use in unapproved indication [Unknown]
  - Product prescribing error [Unknown]
  - Palpitations [Unknown]
  - Insomnia [Unknown]

NARRATIVE: CASE EVENT DATE: 1989
